FAERS Safety Report 19825973 (Version 1)
Quarter: 2021Q3

REPORT INFORMATION
  Report Type: Spontaneous
  Country: US (occurrence: US)
  Receive Date: 20210914
  Receipt Date: 20210914
  Transmission Date: 20211014
  Serious: Yes (Hospitalization)
  Sender: FDA-Public Use
  Company Number: US-STRIDES ARCOLAB LIMITED-2021SP025530

PATIENT
  Age: 15 Year
  Sex: Male

DRUGS (5)
  1. IBUPROFEN. [Concomitant]
     Active Substance: IBUPROFEN
     Indication: GOUT
     Dosage: UNK
     Route: 065
  2. DEXAMETHASONE. [Suspect]
     Active Substance: DEXAMETHASONE
     Indication: GOUT
     Dosage: UNK (INJECTION)
     Route: 014
  3. PREDNISOLONE. [Suspect]
     Active Substance: PREDNISOLONE
     Indication: BRONCHIAL HYPERREACTIVITY
     Dosage: UNK
     Route: 065
  4. AMOXICILLIN. [Concomitant]
     Active Substance: AMOXICILLIN
     Indication: BRONCHIAL HYPERREACTIVITY
     Dosage: UNK
     Route: 065
  5. CLAVULANATE POTASSIUM [Concomitant]
     Active Substance: CLAVULANATE POTASSIUM
     Indication: BRONCHIAL HYPERREACTIVITY
     Dosage: UNK
     Route: 065

REACTIONS (6)
  - Osteonecrosis [Recovered/Resolved]
  - Disseminated blastomycosis [Recovered/Resolved]
  - Arthritis bacterial [Recovered/Resolved]
  - Subperiosteal abscess [Recovered/Resolved]
  - Blastomycosis [Unknown]
  - Osteomyelitis blastomyces [Recovered/Resolved]
